FAERS Safety Report 8480812-8 (Version None)
Quarter: 2012Q3

REPORT INFORMATION
  Report Type: 
  Country: None (occurrence: None)
  Receive Date: 20120702
  Receipt Date: 20120622
  Transmission Date: 20120928
  Serious: Yes (Death)
  Sender: FDA-Public Use
  Company Number: JP-BAYER-2012-062182

PATIENT
  Age: 78 Year
  Sex: Male
  Weight: 53 kg

DRUGS (5)
  1. URSO 250 [Concomitant]
     Dosage: DAILY DOSE 300 MG
     Route: 048
     Dates: start: 20060101, end: 20110801
  2. NEXAVAR [Suspect]
     Dosage: 400 MG DAILY
     Route: 048
     Dates: start: 20110325, end: 20110421
  3. NEXAVAR [Suspect]
     Dosage: 400 MG, QOD
     Dates: start: 20110421, end: 20110729
  4. LIVACT [Concomitant]
     Dosage: DAILY DOSE 12.45 G
     Route: 048
     Dates: end: 20110801
  5. LANSOPRAZOLE [Concomitant]
     Dosage: DAILY DOSE 15 MG
     Route: 048
     Dates: end: 20110801

REACTIONS (3)
  - PLATELET COUNT DECREASED [None]
  - HEPATIC NEOPLASM MALIGNANT [None]
  - HEPATIC FUNCTION ABNORMAL [None]
